FAERS Safety Report 15505911 (Version 1)
Quarter: 2018Q4

REPORT INFORMATION
  Report Type: Spontaneous
  Country: US (occurrence: US)
  Receive Date: 20181016
  Receipt Date: 20181016
  Transmission Date: 20190205
  Serious: No
  Sender: FDA-Public Use
  Company Number: US-PFIZER INC-2018410394

PATIENT
  Age: 50 Year
  Sex: Female
  Weight: 81.18 kg

DRUGS (3)
  1. METHOTREXATE. [Concomitant]
     Active Substance: METHOTREXATE
     Dosage: 1 MG, WEEKLY(1.0 MG BY MOUTH 1 TIME PER WEEK)
     Route: 048
  2. XELJANZ [Suspect]
     Active Substance: TOFACITINIB CITRATE
     Indication: RHEUMATOID ARTHRITIS
     Dosage: UNK
     Dates: end: 20180920
  3. PREDNISONE. [Concomitant]
     Active Substance: PREDNISONE
     Dosage: 0.5 DF, 2X/DAY (10 MG TABLET BY MOUTH 1/2 TABLET IN THE AM AND 1/2 TABLET IN THE AFTERNOON)
     Route: 048

REACTIONS (1)
  - Drug ineffective [Unknown]
